FAERS Safety Report 21376134 (Version 3)
Quarter: 2025Q4

REPORT INFORMATION
  Report Type: Spontaneous
  Country: JP (occurrence: JP)
  Receive Date: 20220926
  Receipt Date: 20251003
  Transmission Date: 20260118
  Serious: Yes (Hospitalization, Other)
  Sender: PFIZER
  Company Number: JP-MLMSERVICE-20220906-3773102-1

PATIENT
  Age: 14 Month
  Sex: Female

DRUGS (4)
  1. INFLIXIMAB [Suspect]
     Active Substance: INFLIXIMAB
     Indication: Kawasaki^s disease
     Dosage: 5 MG/KG, SINGLE, DAY 9
  2. CYCLOSPORINE [Suspect]
     Active Substance: CYCLOSPORINE
     Indication: Kawasaki^s disease
     Dosage: 4 MG/KG, 1X/DAY
     Route: 048
  3. ASPIRIN [Concomitant]
     Active Substance: ASPIRIN
     Indication: Kawasaki^s disease
     Dosage: 30 MG/KG, 1X/DAY
     Route: 048
  4. ULINASTATIN [Concomitant]
     Active Substance: ULINASTATIN
     Indication: Kawasaki^s disease
     Dosage: UNK

REACTIONS (2)
  - Bronchopulmonary aspergillosis [Recovered/Resolved]
  - Off label use [Unknown]
